FAERS Safety Report 21217481 (Version 1)
Quarter: 2022Q3

REPORT INFORMATION
  Report Type: Spontaneous
  Country: DE (occurrence: DE)
  Receive Date: 20220816
  Receipt Date: 20220816
  Transmission Date: 20221027
  Serious: Yes (Hospitalization)
  Sender: FDA-Public Use
  Company Number: DE-NOVARTISPH-NVSC2022DE183351

PATIENT
  Age: 77 Year
  Sex: Female

DRUGS (11)
  1. METHOTREXATE SODIUM [Suspect]
     Active Substance: METHOTREXATE SODIUM
     Indication: Product used for unknown indication
     Dosage: 15 DOSAGE FORM, (DRUG STARTED BETWEEN 15 JUL 2014 TO 14 OCT 2014 DRUG ENDED BETWEEN 16 APR 2015 TO 0
     Route: 065
     Dates: start: 2014, end: 2015
  2. METHOTREXATE SODIUM [Suspect]
     Active Substance: METHOTREXATE SODIUM
     Dosage: 10 DOSAGE FORM, (DRUG STARTED BETWEEN 16 APR 2015 TO 02 DEC 2015 DRUG ENDED BETWEEN 06 DEC 2017 TO 0
     Route: 065
     Dates: start: 2015, end: 2018
  3. METHOTREXATE SODIUM [Suspect]
     Active Substance: METHOTREXATE SODIUM
     Dosage: 15 DOSAGE FORM, (DRUG STARTED BETWEEN 06 DEC 2017 TO 09 MAR 2018 DRUG ENDED BETWEEN 30 OCT 2018 TO 3
     Route: 065
     Dates: start: 2017, end: 2019
  4. HUMIRA [Suspect]
     Active Substance: ADALIMUMAB
     Indication: Rheumatoid arthritis
     Dosage: 40 MG
     Route: 065
     Dates: start: 201404, end: 201504
  5. ORENCIA [Concomitant]
     Active Substance: ABATACEPT
     Indication: Product used for unknown indication
     Dosage: UNK
     Route: 065
     Dates: start: 202005, end: 202008
  6. MABTHERA [Concomitant]
     Active Substance: RITUXIMAB
     Indication: Product used for unknown indication
     Dosage: UNK
     Route: 065
     Dates: start: 201612
  7. MABTHERA [Concomitant]
     Active Substance: RITUXIMAB
     Dosage: UNK
     Route: 065
     Dates: start: 201709
  8. MABTHERA [Concomitant]
     Active Substance: RITUXIMAB
     Dosage: UNK
     Route: 065
     Dates: start: 201803
  9. MABTHERA [Concomitant]
     Active Substance: RITUXIMAB
     Dosage: UNK
     Route: 065
     Dates: start: 201906
  10. XELJANZ [Concomitant]
     Active Substance: TOFACITINIB CITRATE
     Indication: Product used for unknown indication
     Dosage: UNK
     Route: 065
     Dates: start: 201912, end: 202005
  11. TOCILIZUMAB [Concomitant]
     Active Substance: TOCILIZUMAB
     Indication: Product used for unknown indication
     Dosage: UNK
     Route: 065
     Dates: start: 201104, end: 201607

REACTIONS (6)
  - Sepsis [Unknown]
  - Heart rate abnormal [Unknown]
  - Pelvic fracture [Unknown]
  - Sinus node dysfunction [Unknown]
  - Bursitis [Unknown]
  - Impaired healing [Unknown]

NARRATIVE: CASE EVENT DATE: 20210928
